FAERS Safety Report 13198117 (Version 1)
Quarter: 2017Q1

REPORT INFORMATION
  Report Type: Spontaneous
  Country: CZ (occurrence: CZ)
  Receive Date: 20170208
  Receipt Date: 20170208
  Transmission Date: 20170428
  Serious: Yes (Life-Threatening, Hospitalization, Other)
  Sender: FDA-Public Use
  Company Number: CZ-BAYER-2017-021640

PATIENT
  Age: 63 Year
  Sex: Male
  Weight: 80 kg

DRUGS (11)
  1. AMOKSIKLAV [Concomitant]
     Active Substance: AMOXICILLIN\CLAVULANATE POTASSIUM
     Dosage: 1.2 G, UNK
     Route: 042
     Dates: start: 20170108
  2. GENTAMICIN. [Concomitant]
     Active Substance: GENTAMICIN
     Dosage: UNK
     Dates: start: 20170109
  3. MEROPENEM. [Concomitant]
     Active Substance: MEROPENEM
     Dosage: UNK
     Dates: start: 20170121
  4. METRONIDAZOL [Concomitant]
     Active Substance: METRONIDAZOLE
     Dosage: UNK
     Dates: start: 20170109
  5. STIVARGA [Suspect]
     Active Substance: REGORAFENIB
     Indication: COLORECTAL CANCER
     Dosage: 40 MG, QD, FOR 3 WEEKS AND 1 WEEK BREAK
     Route: 048
     Dates: start: 20161216, end: 20170105
  6. ORTANOL [Concomitant]
     Active Substance: OMEPRAZOLE
  7. NOVALGIN [Concomitant]
     Active Substance: METAMIZOLE SODIUM
  8. CLAVULANIC ACID [Concomitant]
     Active Substance: CLAVULANIC ACID
     Dosage: UNK
  9. TAZOCIN [Concomitant]
     Active Substance: PIPERACILLIN SODIUM\TAZOBACTAM SODIUM
     Dates: start: 20170108
  10. KALNORMIN [Concomitant]
     Active Substance: POTASSIUM CHLORIDE
  11. PERFALGAN [Concomitant]
     Active Substance: ACETAMINOPHEN

REACTIONS (2)
  - Pyrexia [Unknown]
  - Hyperbilirubinaemia [Recovering/Resolving]

NARRATIVE: CASE EVENT DATE: 20170104
